FAERS Safety Report 8575706-3 (Version None)
Quarter: 2012Q3

REPORT INFORMATION
  Report Type: 
  Country: None (occurrence: None)
  Receive Date: 20120807
  Receipt Date: 20120803
  Transmission Date: 20120928
  Serious: Yes (Other)
  Sender: FDA-Public Use
  Company Number: PHEH2010US03499

PATIENT
  Sex: Female

DRUGS (1)
  1. AREDIA [Suspect]
     Dosage: UNK
     Dates: start: 19990101

REACTIONS (4)
  - RENAL CANCER [None]
  - HEADACHE [None]
  - DIASTOLIC HYPERTENSION [None]
  - NASAL TURBINATE HYPERTROPHY [None]
